FAERS Safety Report 17006425 (Version 1)
Quarter: 2019Q4

REPORT INFORMATION
  Report Type: Spontaneous
  Country: US (occurrence: US)
  Receive Date: 20191107
  Receipt Date: 20191107
  Transmission Date: 20200122
  Serious: No
  Sender: FDA-Public Use
  Company Number: US-BEH-2019109194

PATIENT
  Age: 50 Year
  Sex: Female

DRUGS (2)
  1. HIZENTRA [Suspect]
     Active Substance: HUMAN IMMUNOGLOBULIN G
     Indication: IMMUNODEFICIENCY COMMON VARIABLE
     Dosage: 10 GRAM
     Route: 065
     Dates: start: 2012, end: 2017
  2. HIZENTRA [Suspect]
     Active Substance: HUMAN IMMUNOGLOBULIN G
     Dosage: 10 GRAM, QW
     Route: 065
     Dates: start: 201903

REACTIONS (4)
  - Infusion site erythema [Unknown]
  - Infusion site swelling [Unknown]
  - Headache [Unknown]
  - Lethargy [Unknown]

NARRATIVE: CASE EVENT DATE: 2019
